FAERS Safety Report 5680071-5 (Version None)
Quarter: 2008Q1

REPORT INFORMATION
  Report Type: 
  Country: None (occurrence: None)
  Receive Date: 20080326
  Receipt Date: 20080319
  Transmission Date: 20080703
  Serious: Yes (Other)
  Sender: FDA-Public Use
  Company Number: BR-JNJFOC-20080304710

PATIENT
  Age: 67 Year
  Sex: Female
  Weight: 34 kg

DRUGS (2)
  1. HALDOL [Suspect]
     Indication: HALLUCINATION
     Dosage: 1/2 TABLET OF 5 MG
  2. CLONAZEPAM [Concomitant]
     Indication: SEDATIVE THERAPY
     Dosage: 15 DROPS
     Route: 048

REACTIONS (2)
  - TREMOR [None]
  - WEIGHT DECREASED [None]
